FAERS Safety Report 25260308 (Version 1)
Quarter: 2025Q2

REPORT INFORMATION
  Report Type: Report from Study
  Country: BR (occurrence: BR)
  Receive Date: 20250501
  Receipt Date: 20250501
  Transmission Date: 20250716
  Serious: Yes (Other)
  Sender: NOVARTIS
  Company Number: BR-002147023-NVSC2024BR184555

PATIENT
  Sex: Female
  Weight: 50 kg

DRUGS (7)
  1. KISQALI [Suspect]
     Active Substance: RIBOCICLIB SUCCINATE
     Indication: Breast cancer
     Dosage: 3 DOSAGE FORM, QD FOR 21 DAYS
     Route: 065
  2. KISQALI [Suspect]
     Active Substance: RIBOCICLIB SUCCINATE
     Route: 065
     Dates: start: 20240831
  3. KISQALI [Suspect]
     Active Substance: RIBOCICLIB SUCCINATE
     Route: 065
  4. KISQALI [Suspect]
     Active Substance: RIBOCICLIB SUCCINATE
     Route: 065
  5. KISQALI [Suspect]
     Active Substance: RIBOCICLIB SUCCINATE
     Dosage: 3 DOSAGE FORM, QD
     Route: 065
  6. ZOMETA [Suspect]
     Active Substance: ZOLEDRONIC ACID
     Indication: Spinal fracture
     Dosage: UNK, Q3MO (EVERY 3 MONTHS)
     Route: 065
  7. LETROZOLE [Suspect]
     Active Substance: LETROZOLE
     Indication: Breast cancer
     Dosage: 1 DOSAGE FORM, QD
     Route: 065

REACTIONS (12)
  - Leukopenia [Unknown]
  - Influenza [Recovered/Resolved]
  - Cough [Recovering/Resolving]
  - Catarrh [Recovering/Resolving]
  - Feeling cold [Recovered/Resolved]
  - Sluggishness [Recovered/Resolved]
  - Headache [Unknown]
  - Asthenia [Unknown]
  - Memory impairment [Recovered/Resolved]
  - Product dose omission in error [Recovering/Resolving]
  - Anisocytosis [Unknown]
  - Macrocytosis [Unknown]
